FAERS Safety Report 7743862-2 (Version None)
Quarter: 2011Q3

REPORT INFORMATION
  Report Type: 
  Country: None (occurrence: None)
  Receive Date: 20110825
  Receipt Date: 20110812
  Transmission Date: 20111222
  Serious: Yes (Other)
  Sender: FDA-Public Use
  Company Number: POMP-1000692

PATIENT

DRUGS (1)
  1. MYOZYME [Suspect]
     Indication: GLYCOGEN STORAGE DISEASE TYPE II
     Dosage: 20 MG/KG, Q2W

REACTIONS (19)
  - HYPERTENSIVE CRISIS [None]
  - RENAL FAILURE [None]
  - ANAEMIA [None]
  - MUSCULOSKELETAL DISCOMFORT [None]
  - OXYGEN SATURATION DECREASED [None]
  - RASH [None]
  - DEAFNESS [None]
  - TACHYCARDIA [None]
  - THROMBOCYTOPENIA [None]
  - HERPES VIRUS INFECTION [None]
  - HERPES SIMPLEX [None]
  - PRURITUS [None]
  - ERYTHEMA [None]
  - GENERAL PHYSICAL HEALTH DETERIORATION [None]
  - CHEST PAIN [None]
  - HYPERSENSITIVITY [None]
  - POLLAKIURIA [None]
  - SENSATION OF FOREIGN BODY [None]
  - OEDEMA PERIPHERAL [None]
